FAERS Safety Report 9473220 (Version 2)
Quarter: 2013Q3

REPORT INFORMATION
  Report Type: Spontaneous
  Country: US (occurrence: US)
  Receive Date: 20130823
  Receipt Date: 20130823
  Transmission Date: 20140515
  Serious: Yes (Other)
  Sender: FDA-Public Use
  Company Number: US-BRISTOL-MYERS SQUIBB COMPANY-18787911

PATIENT
  Age: 67 Year
  Sex: Male
  Weight: 77.1 kg

DRUGS (5)
  1. SPRYCEL [Suspect]
     Indication: CHRONIC MYELOID LEUKAEMIA
     Route: 048
     Dates: start: 2008
  2. ASA [Concomitant]
  3. CLOPIDOGREL BISULFATE [Concomitant]
  4. METOPROLOL [Concomitant]
  5. ATORVASTATIN [Concomitant]

REACTIONS (3)
  - Coronary artery disease [Unknown]
  - Pleural effusion [Unknown]
  - Fluid retention [Unknown]
